FAERS Safety Report 8603052-8 (Version None)
Quarter: 2012Q3

REPORT INFORMATION
  Report Type: 
  Country: None (occurrence: None)
  Receive Date: 20120817
  Receipt Date: 20120628
  Transmission Date: 20120928
  Serious: No
  Sender: FDA-Public Use
  Company Number: US-GLAXOSMITHKLINE-A0983809A

PATIENT
  Age: 67 Year
  Sex: Male
  Weight: 92.3 kg

DRUGS (9)
  1. ZOCOR [Concomitant]
     Dosage: 10MG UNKNOWN
     Route: 048
  2. STOOL SOFTENER [Concomitant]
     Route: 048
  3. LOPRESSOR [Concomitant]
     Dosage: 50MG UNKNOWN
     Route: 048
  4. NEURONTIN [Concomitant]
     Dosage: 100MG UNKNOWN
     Route: 048
  5. VOTRIENT [Suspect]
     Indication: PRODUCT USED FOR UNKNOWN INDICATION
     Dosage: 800MG PER DAY
     Route: 048
  6. COUMADIN [Concomitant]
     Dosage: 1MG UNKNOWN
     Route: 048
  7. PROCHLORPERAZINE [Concomitant]
     Dosage: 5MG UNKNOWN
     Route: 048
  8. DIGOXIN [Concomitant]
     Dosage: .25MG UNKNOWN
     Route: 048
  9. CELEXA [Concomitant]
     Dosage: 10MG UNKNOWN
     Route: 048

REACTIONS (5)
  - OROPHARYNGEAL PAIN [None]
  - CONFUSIONAL STATE [None]
  - VOMITING [None]
  - NAUSEA [None]
  - ORAL PAIN [None]
